FAERS Safety Report 8455415-1 (Version None)
Quarter: 2012Q2

REPORT INFORMATION
  Report Type: 
  Country: None (occurrence: None)
  Receive Date: 20120621
  Receipt Date: 20120612
  Transmission Date: 20120825
  Serious: Yes (Hospitalization, Other)
  Sender: FDA-Public Use
  Company Number: IT-BRISTOL-MYERS SQUIBB COMPANY-16681967

PATIENT
  Age: 91 Year
  Sex: Male

DRUGS (10)
  1. HALCION [Concomitant]
  2. CARVEDILOL [Concomitant]
     Dosage: TABS
  3. ATORVASTATIN CALCIUM [Concomitant]
  4. COUMADIN [Suspect]
     Indication: ATRIAL FIBRILLATION
     Dosage: INTERR 23MAY12
     Dates: start: 20040615
  5. KANRENOL [Concomitant]
     Dosage: TABS
  6. ASPIRIN [Suspect]
  7. ESKIM [Concomitant]
     Dosage: SOFT CAPS
  8. VALSARTAN [Concomitant]
     Dosage: TABS
  9. PANTOPRAZOLE SODIUM [Concomitant]
     Dosage: TABS
  10. FUROSEMIDE [Concomitant]

REACTIONS (2)
  - FALL [None]
  - HAEMATOMA [None]
